FAERS Safety Report 21214932 (Version 2)
Quarter: 2022Q3

REPORT INFORMATION
  Report Type: Report from Study
  Country: GB (occurrence: GB)
  Receive Date: 20220816
  Receipt Date: 20220823
  Transmission Date: 20221026
  Serious: Yes (Hospitalization, Other)
  Sender: FDA-Public Use
  Company Number: GB-BRISTOL-MYERS SQUIBB COMPANY-BMS-2021-094014

PATIENT
  Sex: Male
  Weight: 80 kg

DRUGS (7)
  1. IPILIMUMAB [Suspect]
     Active Substance: IPILIMUMAB
     Indication: Prostate cancer
     Dosage: FREQUENCY: ONCE IN 3 WEEKS
     Route: 042
     Dates: start: 20210722, end: 20210901
  2. NIVOLUMAB [Suspect]
     Active Substance: NIVOLUMAB
     Indication: Prostate cancer
     Dosage: FREQUENCY: ONCE IN 3 WEEKS
     Route: 042
     Dates: start: 20210722, end: 20210901
  3. TRIPTORELIN [Concomitant]
     Active Substance: TRIPTORELIN
     Indication: Prostate cancer
     Dosage: 3 MILLIGRAM, 4 WEEKLY
     Route: 030
     Dates: start: 20160915
  4. ACETAMINOPHEN [Concomitant]
     Active Substance: ACETAMINOPHEN
     Indication: Pain
     Dosage: 500 MILLIGRAM, PRN
     Route: 048
     Dates: start: 20210716
  5. TRAMADOL [Concomitant]
     Active Substance: TRAMADOL
     Indication: Pain
     Dosage: 50 MILLIGRAM, QID
     Route: 048
     Dates: start: 20210903
  6. CHOLECALCIFEROL [Concomitant]
     Active Substance: CHOLECALCIFEROL
     Indication: Supplementation therapy
     Dosage: 1600 UNIT , QD
     Route: 048
     Dates: start: 20161117
  7. SOLIFENACIN [Concomitant]
     Active Substance: SOLIFENACIN
     Indication: Pollakiuria
     Route: 048
     Dates: start: 20160815

REACTIONS (2)
  - Thyroiditis [Recovered/Resolved]
  - Adrenal insufficiency [Recovered/Resolved]

NARRATIVE: CASE EVENT DATE: 20210910
